FAERS Safety Report 8973326 (Version 1)
Quarter: 2012Q4

REPORT INFORMATION
  Report Type: 
  Country: US (occurrence: US)
  Receive Date: 20121218
  Receipt Date: 20121218
  Transmission Date: 20130627
  Serious: Yes (Other)
  Sender: FDA-Public Use
  Company Number: US-PERRIGO-12US010719

PATIENT
  Age: 42 Year
  Sex: Female
  Weight: 68.03 kg

DRUGS (2)
  1. IBUPROFEN 200MG-DIPHENHYDRAMINE CITRATE 38 MG 050 [Suspect]
     Indication: ACCIDENTAL OVERDOSE
     Dosage: Approximately 1/4 of the bottle, single
     Route: 048
     Dates: start: 20121209, end: 20121209
  2. ETHANOL [Concomitant]
     Indication: PRODUCT USED FOR UNKNOWN INDICATION
     Dosage: 3 glasses wine coolers
     Route: 048
     Dates: start: 20121209, end: 20121209

REACTIONS (5)
  - Accidental overdose [Recovered/Resolved]
  - Vomiting [Recovered/Resolved]
  - Abdominal pain upper [Recovered/Resolved]
  - Drug administration error [Recovered/Resolved]
  - Somnolence [Recovered/Resolved]
